FAERS Safety Report 4376092-5 (Version None)
Quarter: 2004Q2

REPORT INFORMATION
  Report Type: 
  Country: None (occurrence: None)
  Receive Date: 20040611
  Receipt Date: 20040609
  Transmission Date: 20050107
  Serious: Yes (Hospitalization)
  Sender: FDA-Public Use
  Company Number: US-GLAXOSMITHKLINE-A0513988A

PATIENT
  Age: 84 Year
  Sex: Female

DRUGS (10)
  1. LAMICTAL [Suspect]
     Indication: BIPOLAR DISORDER
     Route: 048
     Dates: start: 20040316
  2. REMERON [Concomitant]
  3. SEROQUEL [Concomitant]
  4. NOLVADEX [Concomitant]
  5. XANAX [Concomitant]
  6. ABILIFY [Concomitant]
  7. EFFEXOR [Concomitant]
  8. AMBIEN [Concomitant]
  9. MELATONIN [Concomitant]
  10. REMINYL [Concomitant]

REACTIONS (4)
  - DECREASED APPETITE [None]
  - PANCREATITIS [None]
  - PNEUMONIA [None]
  - WHITE BLOOD CELL COUNT INCREASED [None]
